FAERS Safety Report 14309911 (Version 2)
Quarter: 2017Q4

REPORT INFORMATION
  Report Type: Spontaneous
  Country: CH (occurrence: CH)
  Receive Date: 20171220
  Receipt Date: 20171227
  Transmission Date: 20180321
  Serious: Yes (Death, Hospitalization)
  Sender: FDA-Public Use
  Company Number: CH-PFIZER INC-2017535900

PATIENT
  Age: 88 Year
  Sex: Male

DRUGS (12)
  1. BELOC ZOK [Concomitant]
     Active Substance: METOPROLOL SUCCINATE
     Dosage: 25 MG, 1X/DAY
     Route: 048
  2. NOVALGIN [Concomitant]
     Active Substance: METAMIZOLE SODIUM
     Dosage: 500 MG, 3X/DAY
     Route: 048
  3. DUROGESIC [Suspect]
     Active Substance: FENTANYL
     Dosage: 2.1 MG, 0.5 PIECE EVERY 72H (FENTANYL TTS 12 UG/H: 2,1 MG FENTANYL PER PATCH 5,25 CM2)
     Route: 062
  4. MARCOUMAR [Concomitant]
     Active Substance: PHENPROCOUMON
     Dosage: 3 MG, UNK
     Route: 048
  5. SPASMO-URGENIN NEO [Concomitant]
     Active Substance: TROSPIUM
     Dosage: 20 MG, 1X/DAY
     Route: 048
  6. PANTOZOL [Concomitant]
     Active Substance: PANTOPRAZOLE SODIUM
     Dosage: 40 MG, 1X/DAY
     Route: 048
  7. TOREM [Concomitant]
     Active Substance: TORSEMIDE
     Dosage: 5 MG, 1X/DAY
     Route: 048
  8. LAXOBERON [Concomitant]
     Active Substance: SODIUM PICOSULFATE
     Dosage: 0.5 MG, 6 X 0.5 MG/DAY (DROPS 0.5MG/DROP  6 DROPS)
  9. VI-DE 3 [Concomitant]
     Active Substance: CHOLECALCIFEROL
     Dosage: 3 GTT, 1X/DAY (100 IU/GTT; 3 DROPS X 100 IU; 300 IU PER DAY COLECALCIFEROL)
     Route: 048
  10. VISMED [Concomitant]
     Active Substance: HYALURONATE SODIUM
     Dosage: 1.8 MG, 2X/DAY (MONO DOSES, EYE DROPS 1.8MG/ML, DROPS)
     Route: 047
  11. TEMESTA EXPIDET [Suspect]
     Active Substance: LORAZEPAM
     Dosage: 0.25 MG, 1X/DAY (1MG, 0-0-0-1/4 , PIECE P.O.)
     Route: 048
  12. FLURAZEPAM [Suspect]
     Active Substance: FLURAZEPAM\FLURAZEPAM HYDROCHLORIDE
     Dosage: 15 MG, 1X/DAY 0-0-0-1
     Route: 048

REACTIONS (3)
  - Femoral neck fracture [Unknown]
  - Fall [Unknown]
  - Pneumonia [Fatal]

NARRATIVE: CASE EVENT DATE: 20171023
